FAERS Safety Report 9677869 (Version 2)
Quarter: 2013Q4

REPORT INFORMATION
  Report Type: Report from Study
  Country: US (occurrence: US)
  Receive Date: 20131108
  Receipt Date: 20131108
  Transmission Date: 20140711
  Serious: No
  Sender: FDA-Public Use
  Company Number: US-JNJFOC-20071007096

PATIENT
  Age: 66 Year
  Sex: Male
  Weight: 100 kg

DRUGS (2)
  1. CNTO 1275 [Suspect]
     Route: 058
  2. CNTO 1275 [Suspect]
     Indication: PSORIASIS
     Route: 058
     Dates: start: 20060824

REACTIONS (1)
  - Squamous cell carcinoma [Recovered/Resolved]
